FAERS Safety Report 20877756 (Version 4)
Quarter: 2022Q3

REPORT INFORMATION
  Report Type: Report from Study
  Country: JP (occurrence: JP)
  Receive Date: 20220526
  Receipt Date: 20220709
  Transmission Date: 20221026
  Serious: Yes (Hospitalization)
  Sender: FDA-Public Use
  Company Number: JP-CHUGAI-2022018448

PATIENT
  Age: 67 Year
  Sex: Female
  Weight: 52.5 kg

DRUGS (10)
  1. ATEZOLIZUMAB [Suspect]
     Active Substance: ATEZOLIZUMAB
     Indication: Breast cancer
     Dosage: MOST RECENT DOSE OF ATEZOLIZUMAB:26/JAN/2022
     Route: 041
     Dates: start: 20210609
  2. PACLITAXEL [Suspect]
     Active Substance: PACLITAXEL
     Indication: Breast cancer
     Route: 042
     Dates: start: 20210609
  3. PACLITAXEL [Suspect]
     Active Substance: PACLITAXEL
     Dosage: 96 UNK
     Route: 042
     Dates: start: 20210804
  4. BEVACIZUMAB [Suspect]
     Active Substance: BEVACIZUMAB
     Indication: Breast cancer
     Route: 042
     Dates: start: 20210609
  5. ONEALFA [Concomitant]
     Active Substance: ALFACALCIDOL
     Indication: Pathological fracture
     Dosage: 0.5 MICROGRAM, QD
     Route: 048
     Dates: start: 20220205
  6. CALCIUM LACTATE [Concomitant]
     Active Substance: CALCIUM LACTATE
     Indication: Pathological fracture
     Dosage: 3 GRAM, QD
     Route: 048
     Dates: start: 20220205
  7. AMLODIPINE BESYLATE [Concomitant]
     Active Substance: AMLODIPINE BESYLATE
     Indication: Hypertension
     Dosage: 5 MILLIGRAM, QD
     Route: 048
     Dates: start: 20210929
  8. GLYCOSAMINOGLYCANS [Concomitant]
     Active Substance: GLYCOSAMINOGLYCANS
     Indication: Dry skin prophylaxis
     Dosage: UNK
     Route: 061
     Dates: start: 20211117
  9. KETOPROFEN [Concomitant]
     Active Substance: KETOPROFEN
     Indication: Pathological fracture
     Dosage: UNK, PRN
     Route: 061
     Dates: start: 20220204
  10. PETROLATUM [Concomitant]
     Active Substance: PETROLATUM
     Indication: Breast cancer
     Dosage: UNK, PRN
     Route: 061
     Dates: start: 20210616

REACTIONS (1)
  - Adrenocorticotropic hormone deficiency [Recovering/Resolving]

NARRATIVE: CASE EVENT DATE: 20220511
